FAERS Safety Report 4595636-1 (Version None)
Quarter: 2005Q1

REPORT INFORMATION
  Report Type: 
  Country: None (occurrence: None)
  Receive Date: 20050224
  Receipt Date: 20040811
  Transmission Date: 20050727
  Serious: Yes (Hospitalization)
  Sender: FDA-Public Use
  Company Number: 6000413

PATIENT
  Age: 80 Year
  Sex: Female

DRUGS (5)
  1. CARDENSIEL           (BISOPROLOL) [Suspect]
     Dosage: 1 IN 1 D ORAL
     Route: 048
     Dates: start: 20011205, end: 20020210
  2. CORDARONE [Suspect]
     Indication: ATRIAL FIBRILLATION
     Dosage: 200,0000 MG (200 MG, 1 IN 1 D) ORAL
     Route: 048
     Dates: start: 20011205, end: 20020210
  3. CORDARONE [Suspect]
     Indication: ATRIAL FIBRILLATION
     Dosage: 200,0000 MG (200 MG, 1 IN 1 D) ORAL
     Route: 048
     Dates: start: 20020214
  4. COVERSYL                                            (PERINDOPRIL) [Suspect]
     Dosage: 2,000 MG (2 MG, 1 IN 1 D) ORAL
     Route: 048
     Dates: start: 20011205, end: 20020210
  5. COVERSYL                                            (PERINDOPRIL) [Suspect]
     Dosage: 2,000 MG (2 MG, 1 IN 1 D) ORAL
     Route: 048
     Dates: start: 20020213

REACTIONS (9)
  - BLOOD CREATININE INCREASED [None]
  - BLOOD PRESSURE DIASTOLIC DECREASED [None]
  - BUNDLE BRANCH BLOCK RIGHT [None]
  - CARDIAC FAILURE [None]
  - CONDITION AGGRAVATED [None]
  - CYTOLYTIC HEPATITIS [None]
  - FALL [None]
  - PULMONARY OEDEMA [None]
  - VENTRICULAR EXTRASYSTOLES [None]
